FAERS Safety Report 19954568 (Version 1)
Quarter: 2021Q4

REPORT INFORMATION
  Report Type: Spontaneous
  Country: US (occurrence: US)
  Receive Date: 20211012
  Receipt Date: 20211012
  Transmission Date: 20220303
  Serious: No
  Sender: FDA-Public Use
  Company Number: None

PATIENT
  Sex: Female

DRUGS (1)
  1. HUMIRA [Suspect]
     Active Substance: ADALIMUMAB
     Indication: Colitis ulcerative
     Dosage: OTHER FREQUENCY:EVERY 14 DAYS;
     Route: 058
     Dates: start: 20210202

REACTIONS (7)
  - Therapeutic product effect decreased [None]
  - Condition aggravated [None]
  - Injury associated with device [None]
  - Needle issue [None]
  - Product dose omission issue [None]
  - Bloody discharge [None]
  - Mucous stools [None]
